FAERS Safety Report 17398045 (Version 1)
Quarter: 2020Q1

REPORT INFORMATION
  Report Type: Spontaneous
  Country: US (occurrence: US)
  Receive Date: 20200210
  Receipt Date: 20200210
  Transmission Date: 20200409
  Serious: Yes (Hospitalization)
  Sender: FDA-Public Use
  Company Number: US-VAYAPHARMA-2017-US-017313

PATIENT
  Age: 82 Year
  Sex: Male
  Weight: 71.67 kg

DRUGS (4)
  1. VAYACOG (NON-SPECIFIC) [Suspect]
     Active Substance: DOCONEXENT\ICOSAPENT\PHOSPHATIDYL SERINE
     Indication: LIPID METABOLISM DISORDER
     Dosage: 1 TABLETS / 1X/DAY / ORAL
     Route: 048
     Dates: start: 201506
  2. UNSPECIFIED ^PSYCH^ MEDICATIONS [Suspect]
     Active Substance: UNSPECIFIED INGREDIENT
  3. UNSPECIFIED VITAMINS [Suspect]
     Active Substance: VITAMINS
  4. UNSPECIFIED HEART MEDICATIONS [Suspect]
     Active Substance: UNSPECIFIED INGREDIENT

REACTIONS (5)
  - Vascular graft [Unknown]
  - Drug interaction [Unknown]
  - Balance disorder [Unknown]
  - Cerebellar stroke [Unknown]
  - Cardiac disorder [Unknown]

NARRATIVE: CASE EVENT DATE: 2017
